FAERS Safety Report 8926178 (Version 2)
Quarter: 2012Q4

REPORT INFORMATION
  Report Type: 
  Country: US (occurrence: US)
  Receive Date: 20121126
  Receipt Date: 20121212
  Transmission Date: 20130627
  Serious: Yes (Hospitalization, Other)
  Sender: FDA-Public Use
  Company Number: US-SANOFI-AVENTIS-2012SA083467

PATIENT
  Age: 42 Year
  Sex: Female
  Weight: 80.73 kg

DRUGS (25)
  1. LANTUS SOLOSTAR [Suspect]
     Indication: TYPE I DIABETES MELLITUS
     Route: 058
     Dates: start: 201206
  2. LANTUS SOLOSTAR [Suspect]
     Indication: TYPE I DIABETES MELLITUS
     Route: 058
     Dates: start: 201206
  3. SOLOSTAR [Suspect]
     Indication: TYPE I DIABETES MELLITUS
     Dates: start: 201206
  4. SOLOSTAR [Suspect]
     Indication: TYPE I DIABETES MELLITUS
     Dates: start: 201206
  5. NOVOLOG [Suspect]
     Dosage: on sliding scale Dose:54 unit(s)
     Route: 065
     Dates: start: 2012
  6. XANAX [Concomitant]
     Indication: ANTIDEPRESSANT THERAPY
  7. ALL OTHER THERAPEUTIC PRODUCTS [Concomitant]
  8. ZANTAC [Concomitant]
     Indication: ACID REFLUX (ESOPHAGEAL)
  9. CALCIUM/VITAMIN D [Concomitant]
  10. ELAVIL [Concomitant]
  11. SUDAFED [Concomitant]
     Indication: ALLERGY
  12. IBUPROFEN [Concomitant]
  13. COREG [Concomitant]
     Indication: HEART DISORDER
  14. PHENERGAN [Concomitant]
  15. SOMA [Concomitant]
     Indication: LEG CRAMPS
  16. PLAVIX [Concomitant]
     Indication: HEART DISORDER
  17. ASPIRIN [Concomitant]
     Indication: HEART DISORDER
  18. DIOVANE [Concomitant]
     Indication: BLOOD PRESSURE
  19. CELEXA [Concomitant]
     Indication: DEPRESSION
  20. FISH OIL [Concomitant]
     Indication: HEART DISORDER
  21. VITAMIN B12 [Concomitant]
  22. LYRICA [Concomitant]
     Indication: DIABETIC NEUROPATHY
  23. LYRICA [Concomitant]
     Indication: FIBROMYALGIA
  24. FENOFIBRATE [Concomitant]
     Indication: BLOOD CHOLESTEROL ABNORMAL
  25. CRESTOR /UNK/ [Concomitant]
     Indication: BLOOD CHOLESTEROL ABNORMAL

REACTIONS (7)
  - Diabetic ketoacidosis [Unknown]
  - Pancreatitis [Unknown]
  - Hyperglycaemia [Unknown]
  - Hypoglycaemia [Unknown]
  - Upper respiratory tract infection [Unknown]
  - Cough [Unknown]
  - Blood glucose fluctuation [Unknown]
